FAERS Safety Report 13072766 (Version 3)
Quarter: 2017Q2

REPORT INFORMATION
  Report Type: Spontaneous
  Country: US (occurrence: US)
  Receive Date: 20161229
  Receipt Date: 20170616
  Transmission Date: 20170830
  Serious: Yes (Other)
  Sender: FDA-Public Use
  Company Number: US-SA-2016SA107473

PATIENT
  Age: 54 Year
  Sex: Female
  Weight: 88.9 kg

DRUGS (6)
  1. TAXOTERE [Suspect]
     Active Substance: DOCETAXEL
     Indication: BREAST CANCER
     Route: 051
     Dates: start: 20070124, end: 20070124
  2. TAXOTERE [Suspect]
     Active Substance: DOCETAXEL
     Indication: BREAST CANCER
     Route: 051
     Dates: start: 20061206, end: 20061206
  3. BENADRYL [Concomitant]
     Active Substance: DIPHENHYDRAMINE HYDROCHLORIDE
     Route: 042
     Dates: start: 20061206, end: 20070124
  4. DECADRON [Concomitant]
     Active Substance: DEXAMETHASONE
     Route: 042
     Dates: start: 20061206, end: 20070124
  5. ALOXI [Concomitant]
     Active Substance: PALONOSETRON HYDROCHLORIDE
     Dosage: DOSE: 5 CC
     Route: 042
     Dates: start: 20061206, end: 20070124
  6. ZANTAC [Concomitant]
     Active Substance: RANITIDINE HYDROCHLORIDE
     Route: 042
     Dates: start: 20061206, end: 20070124

REACTIONS (12)
  - Headache [Unknown]
  - Hair colour changes [Unknown]
  - Psychological trauma [Unknown]
  - Alopecia [Not Recovered/Not Resolved]
  - Anaemia [Unknown]
  - Tumour marker increased [Unknown]
  - Blood lactate dehydrogenase increased [Unknown]
  - Impaired quality of life [Unknown]
  - Anxiety [Unknown]
  - Hair texture abnormal [Unknown]
  - Emotional distress [Unknown]
  - Injury [Unknown]
